FAERS Safety Report 8026222-9 (Version None)
Quarter: 2012Q1

REPORT INFORMATION
  Report Type: 
  Country: None (occurrence: None)
  Receive Date: 20120105
  Receipt Date: 20110228
  Transmission Date: 20120608
  Serious: No
  Sender: FDA-Public Use
  Company Number: US-ABBOTT-11P-163-0708845-00

PATIENT
  Age: 69 Year
  Sex: Female
  Weight: 55.388 kg

DRUGS (2)
  1. SYNTHROID [Suspect]
     Dosage: 12.5 MCG DAILY
     Dates: start: 20101201
  2. SYNTHROID [Suspect]
     Indication: HYPOTHYROIDISM
     Dosage: 25 MICROGRAMS DAILY
     Route: 048
     Dates: start: 20090801, end: 20101201

REACTIONS (5)
  - WEIGHT INCREASED [None]
  - HYPERMETABOLISM [None]
  - PALPITATIONS [None]
  - HYPOMETABOLISM [None]
  - ANXIETY [None]
